FAERS Safety Report 10448559 (Version 1)
Quarter: 2014Q3

REPORT INFORMATION
  Report Type: Spontaneous
  Country: US (occurrence: US)
  Receive Date: 20140911
  Receipt Date: 20140911
  Transmission Date: 20150326
  Serious: Yes (Other)
  Sender: FDA-Public Use
  Company Number: PHHY2014US115083

PATIENT
  Age: 59 Year
  Sex: Female

DRUGS (2)
  1. VANCOMYCIN [Suspect]
     Active Substance: VANCOMYCIN
  2. CYTARABINE. [Suspect]
     Active Substance: CYTARABINE

REACTIONS (5)
  - Osteomyelitis [Unknown]
  - Renal failure acute [Unknown]
  - Staphylococcal infection [Unknown]
  - Bacteraemia [Unknown]
  - Acute myeloid leukaemia recurrent [Unknown]
